FAERS Safety Report 7132020-0 (Version None)
Quarter: 2010Q4

REPORT INFORMATION
  Report Type: 
  Country: None (occurrence: None)
  Receive Date: 20101124
  Receipt Date: 20101124
  Transmission Date: 20110411
  Serious: No
  Sender: FDA-Public Use
  Company Number: None

PATIENT
  Sex: Male
  Weight: 127.0072 kg

DRUGS (1)
  1. OXYCONTIN OP 20 PURDUE [Suspect]
     Indication: PAIN
     Dosage: 20MG 8 HOURS
     Dates: start: 20101108, end: 20101123

REACTIONS (2)
  - DRUG INEFFECTIVE [None]
  - PRODUCT FORMULATION ISSUE [None]
